FAERS Safety Report 13548934 (Version 12)
Quarter: 2020Q2

REPORT INFORMATION
  Report Type: Spontaneous
  Country: US (occurrence: US)
  Receive Date: 20170516
  Receipt Date: 20200508
  Transmission Date: 20200713
  Serious: Yes (Hospitalization, Other)
  Sender: FDA-Public Use
  Company Number: US-PFIZER INC-2016573619

PATIENT
  Age: 79 Year
  Sex: Female
  Weight: 72 kg

DRUGS (1)
  1. XELJANZ [Suspect]
     Active Substance: TOFACITINIB CITRATE
     Indication: RHEUMATOID ARTHRITIS
     Dosage: 5 MG, 2X/DAY

REACTIONS (7)
  - Pelvic fracture [Unknown]
  - Limb discomfort [Unknown]
  - Spinal compression fracture [Unknown]
  - Hypoacusis [Unknown]
  - Back pain [Not Recovered/Not Resolved]
  - Fall [Unknown]
  - Discomfort [Unknown]

NARRATIVE: CASE EVENT DATE: 20170501
